FAERS Safety Report 9471270 (Version 2)
Quarter: 2014Q3

REPORT INFORMATION
  Report Type: Spontaneous
  Country: US (occurrence: US)
  Receive Date: 20130822
  Receipt Date: 20140804
  Transmission Date: 20150326
  Serious: No
  Sender: FDA-Public Use
  Company Number: US-009507513-1308USA010198

PATIENT
  Sex: Female
  Weight: 58.96 kg

DRUGS (1)
  1. NUVARING [Suspect]
     Active Substance: ETHINYL ESTRADIOL\ETONOGESTREL
     Dosage: UNK
     Route: 067
     Dates: start: 2006, end: 201009

REACTIONS (5)
  - Phlebectomy [Unknown]
  - Deep vein thrombosis [Recovering/Resolving]
  - Laser therapy [Unknown]
  - Sclerotherapy [Unknown]
  - Phlebitis deep [Recovering/Resolving]

NARRATIVE: CASE EVENT DATE: 20100830
